FAERS Safety Report 7563408-1 (Version None)
Quarter: 2011Q2

REPORT INFORMATION
  Report Type: 
  Country: None (occurrence: None)
  Receive Date: 20110622
  Receipt Date: 20110228
  Transmission Date: 20111010
  Serious: Yes (Life-Threatening)
  Sender: FDA-Public Use
  Company Number: B0703404A

PATIENT
  Sex: Female
  Weight: 67 kg

DRUGS (14)
  1. VANCOMYCIN HCL [Suspect]
     Indication: FEBRILE NEUTROPENIA
     Dosage: 2G PER DAY
     Route: 065
     Dates: start: 20071015, end: 20071021
  2. DECADRON [Concomitant]
     Indication: STEM CELL TRANSPLANT
     Dosage: 40MGM2 PER DAY
     Route: 065
     Dates: start: 20071008, end: 20071011
  3. GRAN [Concomitant]
     Dates: start: 20071014, end: 20071021
  4. GRAN [Concomitant]
     Dates: start: 20071209, end: 20071210
  5. GASPORT [Concomitant]
     Dosage: 20MG PER DAY
     Route: 048
     Dates: start: 20071011
  6. LEVOFLOXACIN [Concomitant]
     Dosage: 400MG PER DAY
     Route: 048
     Dates: start: 20071011, end: 20071016
  7. ALKERAN [Suspect]
     Indication: STEM CELL TRANSPLANT
     Dosage: 130MGM2 PER DAY
     Route: 042
     Dates: start: 20071011, end: 20071011
  8. ETOPOSIDE [Suspect]
     Indication: STEM CELL TRANSPLANT
     Dosage: 500MGM2 PER DAY
     Route: 065
     Dates: start: 20071008, end: 20071010
  9. MAXIPIME [Suspect]
     Indication: FEBRILE NEUTROPENIA
     Dosage: 3G PER DAY
     Route: 065
     Dates: start: 20071015, end: 20071021
  10. ZOVIRAX [Concomitant]
     Dosage: 600MG PER DAY
     Route: 048
     Dates: start: 20071011, end: 20071031
  11. MYCOSYST [Concomitant]
     Dosage: 400MG PER DAY
     Route: 048
     Dates: start: 20071011, end: 20071025
  12. RITUXAN [Suspect]
  13. CYCLOPHOSPHAMIDE [Suspect]
     Indication: STEM CELL TRANSPLANT
     Dosage: 60MGK PER DAY
     Route: 065
     Dates: start: 20071008, end: 20071009
  14. GRANISETRON [Concomitant]
     Dosage: 3MG PER DAY
     Dates: start: 20071011, end: 20071011

REACTIONS (5)
  - FEBRILE NEUTROPENIA [None]
  - BLOOD LACTATE DEHYDROGENASE INCREASED [None]
  - ASPARTATE AMINOTRANSFERASE INCREASED [None]
  - ALANINE AMINOTRANSFERASE INCREASED [None]
  - PNEUMONIA [None]
